FAERS Safety Report 4375640-9 (Version None)
Quarter: 2004Q2

REPORT INFORMATION
  Report Type: 
  Country: None (occurrence: None)
  Receive Date: 20040607
  Receipt Date: 20040526
  Transmission Date: 20050107
  Serious: Yes (Other)
  Sender: FDA-Public Use
  Company Number: 200412634BCC

PATIENT
  Age: 22 Year
  Sex: Male
  Weight: 86.1834 kg

DRUGS (3)
  1. NEO-SYNEPHRINE (PHENYLEPHRINE HYDROCHLORIDE) [Suspect]
     Dates: start: 20040526
  2. CLARITIN-D [Suspect]
     Dates: start: 20040525
  3. ASTELIN [Suspect]
     Dates: start: 20040524

REACTIONS (3)
  - BLOOD PRESSURE DIASTOLIC INCREASED [None]
  - DIZZINESS [None]
  - DYSPNOEA [None]
